FAERS Safety Report 15655194 (Version 1)
Quarter: 2018Q4

REPORT INFORMATION
  Report Type: Spontaneous
  Country: US (occurrence: US)
  Receive Date: 20181126
  Receipt Date: 20181126
  Transmission Date: 20190205
  Serious: Yes (Hospitalization, Other)
  Sender: FDA-Public Use
  Company Number: US-ZYDUS-030626

PATIENT
  Age: 49 Year
  Sex: Male

DRUGS (7)
  1. FLUOXETINE [Interacting]
     Active Substance: FLUOXETINE HYDROCHLORIDE
     Indication: MENTAL DISORDER
     Route: 065
  2. BUPIVACAINE. [Interacting]
     Active Substance: BUPIVACAINE
     Indication: SPINAL ANAESTHESIA
     Route: 065
  3. LITHIUM. [Interacting]
     Active Substance: LITHIUM
     Indication: MENTAL DISORDER
     Route: 065
  4. BUPROPION/BUPROPION HYDROCHLORIDE [Suspect]
     Active Substance: BUPROPION HYDROCHLORIDE
     Indication: MENTAL DISORDER
     Route: 065
  5. HALOPERIDOL. [Interacting]
     Active Substance: HALOPERIDOL
     Indication: MENTAL DISORDER
     Route: 065
  6. TRAZODONE [Interacting]
     Active Substance: TRAZODONE HYDROCHLORIDE
     Indication: MENTAL DISORDER
     Route: 065
  7. GABAPENTIN. [Interacting]
     Active Substance: GABAPENTIN
     Indication: MENTAL DISORDER
     Route: 065

REACTIONS (9)
  - Tachycardia [Recovered/Resolved]
  - Pyrexia [Recovered/Resolved]
  - Serotonin syndrome [Recovered/Resolved]
  - Hypertension [Recovered/Resolved]
  - Diarrhoea [Recovered/Resolved]
  - Bradycardia [Recovered/Resolved]
  - Drug interaction [Unknown]
  - Myoclonus [Recovered/Resolved]
  - Hypotension [Recovered/Resolved]
